FAERS Safety Report 6948285-1 (Version None)
Quarter: 2010Q3

REPORT INFORMATION
  Report Type: 
  Country: None (occurrence: None)
  Receive Date: 20100828
  Receipt Date: 20091026
  Transmission Date: 20110219
  Serious: No
  Sender: FDA-Public Use
  Company Number: US-ABBOTT-09P-163-0605612-00

PATIENT
  Sex: Male
  Weight: 99.88 kg

DRUGS (8)
  1. NIASPAN [Suspect]
     Indication: BLOOD CHOLESTEROL INCREASED
     Dates: start: 20091001, end: 20091001
  2. LISINOPRIL [Concomitant]
     Indication: HYPERTENSION
     Dates: start: 20090701
  3. TERAZOSIN HCL [Concomitant]
     Indication: HYPERTENSION
  4. FINASTERIDE [Concomitant]
     Indication: PROSTATOMEGALY
  5. SIMVASTATIN [Concomitant]
     Indication: BLOOD CHOLESTEROL INCREASED
  6. ASPIRIN [Concomitant]
     Indication: CARDIOVASCULAR EVENT PROPHYLAXIS
  7. ALLOPURINOL [Concomitant]
     Indication: BLOOD URIC ACID INCREASED
     Dosage: DAILY
  8. VITAMIN D [Concomitant]
     Indication: VITAMIN SUPPLEMENTATION

REACTIONS (2)
  - DIZZINESS [None]
  - HYPERHIDROSIS [None]
